FAERS Safety Report 23847660 (Version 1)
Quarter: 2024Q2

REPORT INFORMATION
  Report Type: Spontaneous
  Country: GR (occurrence: GR)
  Receive Date: 20240513
  Receipt Date: 20240513
  Transmission Date: 20240715
  Serious: Yes (Hospitalization, Other)
  Sender: FDA-Public Use
  Company Number: GR-EMA-DD-20240419-7482701-103437

PATIENT
  Age: 72 Year

DRUGS (3)
  1. DAPTOMYCIN [Suspect]
     Active Substance: DAPTOMYCIN
     Indication: Product used for unknown indication
  2. VANCOMYCIN [Interacting]
     Active Substance: VANCOMYCIN
     Indication: Product used for unknown indication
  3. TEICOPLANIN [Interacting]
     Active Substance: TEICOPLANIN

REACTIONS (3)
  - Drug reaction with eosinophilia and systemic symptoms [Recovering/Resolving]
  - Infection [Unknown]
  - Cytomegalovirus infection reactivation [Unknown]
